FAERS Safety Report 12661758 (Version 5)
Quarter: 2017Q1

REPORT INFORMATION
  Report Type: Report from Study
  Country: US (occurrence: US)
  Receive Date: 20160817
  Receipt Date: 20170323
  Transmission Date: 20170428
  Serious: Yes (Hospitalization, Other)
  Sender: FDA-Public Use
  Company Number: US-BAYER-2016-040072

PATIENT
  Age: 78 Year
  Sex: Female
  Weight: 77.55 kg

DRUGS (14)
  1. ADEMPAS [Suspect]
     Active Substance: RIOCIGUAT
     Indication: PULMONARY HYPERTENSION
     Dosage: 0.5 MG, TID
     Dates: end: 20160305
  2. ADEMPAS [Suspect]
     Active Substance: RIOCIGUAT
     Indication: PULMONARY HYPERTENSION
     Dosage: 2.5 MG, UNK
     Dates: start: 201602, end: 201608
  3. ADEMPAS [Suspect]
     Active Substance: RIOCIGUAT
     Indication: PULMONARY HYPERTENSION
     Dosage: 2.5 MG, TID
     Route: 048
     Dates: start: 20161011
  4. ADEMPAS [Suspect]
     Active Substance: RIOCIGUAT
     Indication: PULMONARY HYPERTENSION
     Dosage: UNK
     Dates: start: 20160217
  5. ADEMPAS [Suspect]
     Active Substance: RIOCIGUAT
     Indication: PULMONARY HYPERTENSION
     Dosage: 1 MG, TID
  6. ADEMPAS [Suspect]
     Active Substance: RIOCIGUAT
     Indication: PULMONARY HYPERTENSION
     Dosage: 2 MG, TID
  7. ADEMPAS [Suspect]
     Active Substance: RIOCIGUAT
     Indication: PULMONARY HYPERTENSION
     Dosage: 2.5 MG, TID
     Route: 048
  8. ADEMPAS [Suspect]
     Active Substance: RIOCIGUAT
     Indication: PULMONARY HYPERTENSION
     Dosage: 2.5 MG, TID
  9. ADEMPAS [Suspect]
     Active Substance: RIOCIGUAT
     Indication: PULMONARY HYPERTENSION
     Dosage: UNK
     Dates: start: 20160323
  10. ADEMPAS [Suspect]
     Active Substance: RIOCIGUAT
     Indication: PULMONARY HYPERTENSION
     Dosage: 1.5 MG, TID
  11. ADEMPAS [Suspect]
     Active Substance: RIOCIGUAT
     Indication: PULMONARY HYPERTENSION
     Dosage: 0.5 MG, TID
     Dates: end: 20160305
  12. WARFARIN [Concomitant]
     Active Substance: WARFARIN
     Dosage: UNK
  13. COUMADIN [Concomitant]
     Active Substance: WARFARIN SODIUM
  14. ADEMPAS [Suspect]
     Active Substance: RIOCIGUAT
     Indication: PULMONARY HYPERTENSION
     Dosage: 2.5 MG, TID

REACTIONS (23)
  - Arteriovenous fistula operation [Unknown]
  - Vomiting [Recovered/Resolved]
  - Bladder mass [Unknown]
  - Constipation [Not Recovered/Not Resolved]
  - Dizziness [None]
  - Breath sounds abnormal [Not Recovered/Not Resolved]
  - Blood pressure decreased [None]
  - Arteriovenous fistula site haemorrhage [Unknown]
  - Dyspnoea [Not Recovered/Not Resolved]
  - Dialysis [None]
  - Headache [Unknown]
  - Asthenia [None]
  - Oedema [Not Recovered/Not Resolved]
  - Nausea [Unknown]
  - Ocular hyperaemia [None]
  - Blood urine present [None]
  - Hypotension [Unknown]
  - Hospitalisation [None]
  - Productive cough [Unknown]
  - Bladder operation [Unknown]
  - Cough [None]
  - Oedema peripheral [None]
  - Dizziness [Not Recovered/Not Resolved]

NARRATIVE: CASE EVENT DATE: 20160504
